FAERS Safety Report 5342749-2 (Version None)
Quarter: 2007Q2

REPORT INFORMATION
  Report Type: 
  Country: None (occurrence: None)
  Receive Date: 20070601
  Receipt Date: 20070523
  Transmission Date: 20071010
  Serious: Yes (Death)
  Sender: FDA-Public Use
  Company Number: US-PFIZER INC-2007041882

PATIENT
  Sex: Male
  Weight: 87.5 kg

DRUGS (22)
  1. METHYLPREDNISOLONE SODIUM SUCCINATE [Suspect]
     Dosage: DAILY DOSE:2MG/KG
     Dates: start: 20070321, end: 20070325
  2. ETANERCEPT [Suspect]
     Indication: LUNG DISORDER
     Dosage: DAILY DOSE:25MG-FREQ:FREQUENCY: 2 IN 1 WEEKS
     Dates: start: 20070306, end: 20070320
  3. MYCOPHENOLATE MOFETIL [Suspect]
     Dates: start: 20070228, end: 20070325
  4. GANCICLOVIR SODIUM [Suspect]
     Dates: start: 20070321, end: 20070325
  5. CITALOPRAM HYDROBROMIDE [Suspect]
     Dates: start: 20070226, end: 20070324
  6. GANCICLOVIR SODIUM [Concomitant]
     Dates: start: 20070321, end: 20070325
  7. PANTOPRAZOLE SODIUM [Concomitant]
     Dates: start: 20070323, end: 20070325
  8. GALENIC /FLUTICASONE/SALMETEROL/ [Concomitant]
     Dates: start: 20070226, end: 20070325
  9. TIOTROPIUM BROMIDE [Concomitant]
     Dates: start: 20070227, end: 20070325
  10. MONTELUKAST SODIUM [Concomitant]
     Dates: start: 20070226, end: 20070325
  11. MORPHINE SULFATE [Concomitant]
     Dates: start: 20070324, end: 20070325
  12. ATOVAQUONE [Concomitant]
     Dates: start: 20070321, end: 20070324
  13. CALCIUM ACETATE [Concomitant]
     Dates: start: 20070316, end: 20070324
  14. INSULIN GLARGINE [Concomitant]
     Dates: start: 20070321, end: 20070324
  15. ACETAMINOPHEN [Concomitant]
     Dates: start: 20070321, end: 20070324
  16. DEXTROSE [Concomitant]
     Dates: start: 20070226, end: 20070324
  17. DIPHENHYDRAMINE HYDROCHLORIDE [Concomitant]
     Dates: start: 20070324, end: 20070324
  18. VANCOMYCIN HCL [Concomitant]
     Dates: start: 20070321, end: 20070323
  19. MEROPENEM [Concomitant]
     Dates: start: 20070323, end: 20070325
  20. VORICONAZOLE [Concomitant]
     Dates: start: 20070301, end: 20070325
  21. INSULIN ASPART [Concomitant]
     Dates: start: 20070226
  22. OXYCODONE HCL [Concomitant]
     Dates: start: 20070226, end: 20070324

REACTIONS (2)
  - RENAL FAILURE [None]
  - RESPIRATORY FAILURE [None]
